FAERS Safety Report 4320239-3 (Version None)
Quarter: 2004Q1

REPORT INFORMATION
  Report Type: 
  Country: None (occurrence: None)
  Receive Date: 20040317
  Receipt Date: 20040303
  Transmission Date: 20041129
  Serious: Yes (Hospitalization)
  Sender: FDA-Public Use
  Company Number: 2004014597

PATIENT
  Age: 35 Year
  Sex: Female

DRUGS (6)
  1. ZELDOX (CAPSULES) (ZIPRASIDONE) [Suspect]
     Indication: SCHIZOPHRENIA
     Dosage: 120 MG (DAILY), ORAL
     Route: 048
     Dates: start: 20031125
  2. OLANZAPINE [Suspect]
     Indication: SCHIZOPHRENIA
     Dosage: 20 MG (DAILY), ORAL
     Route: 048
     Dates: start: 20031217, end: 20040129
  3. FLUPENTIXOL (FLUPENTIXOL) [Suspect]
     Indication: SCHIZOPHRENIA
     Dosage: 10 MG (DAILY), ORAL
     Route: 048
     Dates: start: 20031202
  4. FLUPNTIXOL DECANOATE (FLUPENTIXOL DECANOATE [Suspect]
     Indication: SCHIZOPHRENIA
     Dosage: INTRAMUSCULAR
     Route: 030
     Dates: start: 20031208
  5. LORAZEPAM [Concomitant]
  6. BIPERIDEN HYDROCHLORIDE TAB [Concomitant]

REACTIONS (2)
  - NEUTROPENIA [None]
  - WHITE BLOOD CELL COUNT DECREASED [None]
